FAERS Safety Report 17233799 (Version 1)
Quarter: 2020Q1

REPORT INFORMATION
  Report Type: Spontaneous
  Country: TR (occurrence: TR)
  Receive Date: 20200106
  Receipt Date: 20200106
  Transmission Date: 20200409
  Serious: Yes (Hospitalization)
  Sender: FDA-Public Use
  Company Number: TR-009507513-1912TUR011251

PATIENT
  Age: 10 Year
  Sex: Female
  Weight: 25 kg

DRUGS (2)
  1. CANDISEPT [Concomitant]
     Dosage: 200 MILLIGRAM X3
     Route: 042
     Dates: start: 20191114, end: 20191120
  2. INVANZ [Suspect]
     Active Substance: ERTAPENEM SODIUM
     Dosage: 375 MILLIGRAM X 3
     Route: 042
     Dates: start: 20191114, end: 20191120

REACTIONS (1)
  - Encephalopathy [Recovered/Resolved]

NARRATIVE: CASE EVENT DATE: 20191119
